FAERS Safety Report 7199088-7 (Version None)
Quarter: 2010Q4

REPORT INFORMATION
  Report Type: 
  Country: None (occurrence: None)
  Receive Date: 20101124
  Receipt Date: 20100706
  Transmission Date: 20110411
  Serious: Yes (Other)
  Sender: FDA-Public Use
  Company Number: SPV1-2010-01232

PATIENT
  Age: 20 Year
  Sex: Male
  Weight: 40.8 kg

DRUGS (1)
  1. CARBATROL [Suspect]
     Indication: CONVULSION
     Dosage: 300 MG, 2X/DAY:BID, PARENTERAL ; 100 MG, 1XDAY:QD, PARENTERAL
     Route: 051
     Dates: start: 20100701

REACTIONS (3)
  - CONDITION AGGRAVATED [None]
  - CONVULSION [None]
  - PRODUCT QUALITY ISSUE [None]
